FAERS Safety Report 10483086 (Version 1)
Quarter: 2014Q3

REPORT INFORMATION
  Report Type: Spontaneous
  Country: FR (occurrence: FR)
  Receive Date: 20140930
  Receipt Date: 20140930
  Transmission Date: 20150326
  Serious: Yes (Hospitalization)
  Sender: FDA-Public Use
  Company Number: FR-EMCURE-000795

PATIENT
  Age: 58 Year
  Sex: Male

DRUGS (2)
  1. MUSTARGEN [Suspect]
     Active Substance: MECHLORETHAMINE HYDROCHLORIDE
     Indication: LYMPHOMA
     Route: 061
     Dates: end: 20140818
  2. BICNU [Suspect]
     Active Substance: CARMUSTINE
     Indication: LYMPHOMA
     Route: 061

REACTIONS (6)
  - Aortic dilatation [None]
  - Aortic valve calcification [None]
  - Dyspnoea [Not Recovered/Not Resolved]
  - Incorrect route of drug administration [Unknown]
  - Hypoxia [None]
  - Asthenia [Not Recovered/Not Resolved]

NARRATIVE: CASE EVENT DATE: 201407
